FAERS Safety Report 18039720 (Version 1)
Quarter: 2020Q3

REPORT INFORMATION
  Report Type: Spontaneous
  Country: GB (occurrence: GB)
  Receive Date: 20200718
  Receipt Date: 20200718
  Transmission Date: 20201103
  Serious: Yes (Other)
  Sender: FDA-Public Use
  Company Number: GB-ACCORD-191337

PATIENT
  Age: 54 Year
  Sex: Male
  Weight: 58 kg

DRUGS (19)
  1. COLECALCIFEROL [Concomitant]
     Active Substance: CHOLECALCIFEROL
     Dosage: FOR 29 DAYS
     Dates: start: 20200522
  2. NOVORAPID [Concomitant]
     Active Substance: INSULIN ASPART
     Dosage: BEFORE LUNCH
     Route: 058
     Dates: start: 20200630
  3. LEVETIRACETAM. [Concomitant]
     Active Substance: LEVETIRACETAM
     Dosage: REDUCING DOSE REGIMEN
     Dates: start: 20200522
  4. BUDESONIDE. [Concomitant]
     Active Substance: BUDESONIDE
     Dates: start: 20200522, end: 20200630
  5. LANSOPRAZOLE. [Concomitant]
     Active Substance: LANSOPRAZOLE
     Dosage: BEFORE MEALS.
     Dates: start: 20200521
  6. QUETIAPINE. [Suspect]
     Active Substance: QUETIAPINE
     Indication: PRODUCT USED FOR UNKNOWN INDICATION
  7. VITAMINS NOS [Concomitant]
     Active Substance: VITAMINS
     Dates: start: 20200521
  8. PARACETAMOL [Concomitant]
     Active Substance: ACETAMINOPHEN
     Indication: PAIN
     Dosage: UP TO 4 TIMES A DAY
     Dates: start: 20200522
  9. FULTIUM?D3 [Concomitant]
     Active Substance: CHOLECALCIFEROL
     Dosage: FOR 30 DAYS
     Dates: start: 20200521, end: 20200620
  10. ACETYLSALICYLIC ACID [Concomitant]
     Active Substance: ASPIRIN
     Dosage: TAKE ONE DAILY
     Dates: start: 20200522
  11. PREDNISOLONE. [Concomitant]
     Active Substance: PREDNISOLONE
     Dosage: DAILY ON MONDAYS, WEDNESDAY AND F...
     Dates: start: 20200522
  12. NOVOMIX [Concomitant]
     Active Substance: INSULIN ASPART
     Dosage: IN THE MORNING
     Route: 058
     Dates: start: 20200630
  13. URSODEOXYCHOLATE SODIUM/URSODEOXYCHOLIC ACID [Concomitant]
     Active Substance: URSODIOL
     Dosage: AT NIGHT
     Dates: start: 20200522
  14. FOLIC ACID. [Concomitant]
     Active Substance: FOLIC ACID
     Dates: start: 20200521
  15. ADOPORT [Concomitant]
     Active Substance: TACROLIMUS
     Dosage: TAKE AS DIRECTED
     Dates: start: 20200522
  16. MAGNESIUM ASPARTATE/MAGNESIUM ASPARTATE HYDROCHLOR [Concomitant]
     Active Substance: MAGNESIUM ASPARTATE HYDROCHLORIDE
     Dosage: DISSOLVE OR MIX IN WATER...
     Dates: start: 20200630
  17. DIHYDROCODEINE [Concomitant]
     Active Substance: DIHYDROCODEINE
     Dosage: UP TO 4 TIMES A DAY
     Dates: start: 20200522
  18. GLICLAZIDE [Concomitant]
     Active Substance: GLICLAZIDE
     Dosage: DAILY ON MONDAY, WEDNESDAY...
     Dates: start: 20200522, end: 20200630
  19. SULFAMETHOXAZOLE/TRIMETHOPRIM [Concomitant]
     Active Substance: SULFAMETHOXAZOLE\TRIMETHOPRIM
     Dosage: DAILY ON MONDAY, WEDNESDAY...
     Dates: start: 20200522

REACTIONS (2)
  - Drug intolerance [Unknown]
  - Pancytopenia [Unknown]
